FAERS Safety Report 11544348 (Version 1)
Quarter: 2015Q3

REPORT INFORMATION
  Report Type: Spontaneous
  Country: US (occurrence: US)
  Receive Date: 20150924
  Receipt Date: 20150924
  Transmission Date: 20151125
  Serious: No
  Sender: FDA-Public Use
  Company Number: US-PFIZER INC-2015305812

PATIENT
  Age: 65 Year
  Sex: Male
  Weight: 67 kg

DRUGS (3)
  1. SYNTHROID [Concomitant]
     Active Substance: LEVOTHYROXINE SODIUM
     Dosage: UNK
  2. INLYTA [Suspect]
     Active Substance: AXITINIB
     Indication: RENAL CANCER
     Dosage: 5 MG, 2X/DAY (MORNING AND EVENING)
     Dates: start: 2015
  3. BACILAC [Concomitant]
     Active Substance: BIFIDOBACTERIUM LONGUM SUBSP. INFANTIS\ LACTOBACILLUS ACIDOPHILUS\ LACTOBACILLUS CASEI\ LACTOBACILLUS PLANTARUM\ LACTOBACILLUS RHAMNOSUS
     Dosage: 5 MG, 2X/DAY (MORNING AND NIGHT)

REACTIONS (4)
  - Hypotension [Unknown]
  - Dysphonia [Not Recovered/Not Resolved]
  - Dizziness [Unknown]
  - Hypertension [Unknown]
